FAERS Safety Report 18597900 (Version 4)
Quarter: 2022Q3

REPORT INFORMATION
  Report Type: Report from Study
  Country: US (occurrence: US)
  Receive Date: 20201210
  Receipt Date: 20220909
  Transmission Date: 20221026
  Serious: Yes (Other)
  Sender: FDA-Public Use
  Company Number: US-ABBVIE-20K-163-3684041-00

PATIENT
  Age: 69 Year
  Sex: Female
  Weight: 86.260 kg

DRUGS (5)
  1. HUMIRA [Suspect]
     Active Substance: ADALIMUMAB
     Indication: Crohn^s disease
     Route: 058
  2. OCUVITE [Suspect]
     Active Substance: VITAMINS
     Indication: Eye disorder
     Route: 065
  3. MODERNA COVID-19 VACCINE [Concomitant]
     Active Substance: ELASOMERAN
     Indication: COVID-19 immunisation
     Route: 030
     Dates: start: 20210307, end: 20210307
  4. MODERNA COVID-19 VACCINE [Concomitant]
     Active Substance: ELASOMERAN
     Route: 030
     Dates: start: 20210404, end: 20210404
  5. MODERNA COVID-19 VACCINE [Concomitant]
     Active Substance: ELASOMERAN
     Route: 030
     Dates: start: 20211104, end: 20211104

REACTIONS (8)
  - Macular degeneration [Not Recovered/Not Resolved]
  - Skin irritation [Unknown]
  - Type 2 diabetes mellitus [Unknown]
  - Hypersensitivity [Unknown]
  - Rash [Unknown]
  - Erythema [Unknown]
  - Diarrhoea [Unknown]
  - Dyspnoea [Not Recovered/Not Resolved]

NARRATIVE: CASE EVENT DATE: 20201101
